FAERS Safety Report 10418591 (Version 2)
Quarter: 2014Q3

REPORT INFORMATION
  Report Type: Report from Study
  Country: US (occurrence: US)
  Receive Date: 20140829
  Receipt Date: 20140905
  Transmission Date: 20150326
  Serious: Yes (Death, Life-Threatening, Hospitalization)
  Sender: FDA-Public Use
  Company Number: US-MERCK-1408USA016052

PATIENT
  Age: 51 Year
  Sex: Female
  Weight: 107.1 kg

DRUGS (3)
  1. VORINOSTAT [Suspect]
     Active Substance: VORINOSTAT
     Indication: ACUTE MYELOID LEUKAEMIA
     Dosage: 500 MG, TID, ON DAYS 1-3, INDUCTION AND RE-INDUCTION (CYCLE=28 DAYS), CYCLE 1
     Route: 048
     Dates: start: 20140716, end: 20140719
  2. CYTARABINE. [Suspect]
     Active Substance: CYTARABINE
     Indication: ACUTE MYELOID LEUKAEMIA
     Dosage: 1500 MG/M2/DAY, CONTINOUS, ON DAYS 4-7,INDUCTION AND RE-INDUCTION (CYCLE=28 DAYS), CYCLE 1
     Route: 042
     Dates: start: 20140719, end: 20140723
  3. IDARUBICIN [Suspect]
     Active Substance: IDARUBICIN
     Indication: ACUTE MYELOID LEUKAEMIA
     Dosage: 12 MG/M2/DAY, OVER 15 MINUTES, ON DAYS 4-6, INDUCTION AND RE-INDUCTION (CYCLE=28 DAYS), CYCLE 1
     Route: 042
     Dates: start: 20140719, end: 20140821

REACTIONS (5)
  - Cardiac arrest [Fatal]
  - Hypotension [Unknown]
  - Respiratory failure [Unknown]
  - Sepsis [Unknown]
  - Atrial fibrillation [Unknown]

NARRATIVE: CASE EVENT DATE: 20140807
